FAERS Safety Report 19174406 (Version 1)
Quarter: 2021Q2

REPORT INFORMATION
  Report Type: Report from Study
  Country: DK (occurrence: DK)
  Receive Date: 20210423
  Receipt Date: 20210423
  Transmission Date: 20210717
  Serious: Yes (Hospitalization)
  Sender: FDA-Public Use
  Company Number: NVSC2021DK046611

PATIENT
  Sex: Female

DRUGS (3)
  1. INC280 [Suspect]
     Active Substance: CAPMATINIB
     Indication: NON-SMALL CELL LUNG CANCER METASTATIC
     Dosage: 400 MG, BID
     Route: 065
     Dates: start: 20210204
  2. INC280 [Suspect]
     Active Substance: CAPMATINIB
     Dosage: 200 MG
     Route: 065
     Dates: end: 20210225
  3. PREDNISOLON [Concomitant]
     Active Substance: PREDNISOLONE
     Indication: PRODUCT USED FOR UNKNOWN INDICATION
     Dosage: 25 MG, QD
     Route: 065

REACTIONS (6)
  - Lip erythema [Recovered/Resolved]
  - Oral discomfort [Recovered/Resolved]
  - Rash [Recovered/Resolved]
  - Peripheral sensory neuropathy [Recovered/Resolved]
  - Tongue erythema [Recovered/Resolved]
  - Pruritus [Recovered/Resolved]

NARRATIVE: CASE EVENT DATE: 20210222
